FAERS Safety Report 21072760 (Version 7)
Quarter: 2023Q2

REPORT INFORMATION
  Report Type: Report from Study
  Country: US (occurrence: US)
  Receive Date: 20220712
  Receipt Date: 20230609
  Transmission Date: 20230722
  Serious: Yes (Other)
  Sender: FDA-Public Use
  Company Number: US-002147023-NVSC2022US157984

PATIENT
  Sex: Female

DRUGS (1)
  1. COSENTYX [Suspect]
     Active Substance: SECUKINUMAB
     Indication: Psoriatic arthropathy
     Dosage: 150 MG, QMO (EVERY FOUR WEEKS)
     Route: 058

REACTIONS (9)
  - Vaginal haemorrhage [Unknown]
  - Uterine polyp [Unknown]
  - Cervical polyp [Unknown]
  - Neuroma [Unknown]
  - Fasciitis [Unknown]
  - Abdominal pain lower [Unknown]
  - Joint swelling [Recovering/Resolving]
  - Psoriasis [Unknown]
  - Drug ineffective [Unknown]
